FAERS Safety Report 8333695-0 (Version None)
Quarter: 2012Q2

REPORT INFORMATION
  Report Type: 
  Country: None (occurrence: None)
  Receive Date: 20120503
  Receipt Date: 20120423
  Transmission Date: 20120825
  Serious: Yes (Hospitalization, Other)
  Sender: FDA-Public Use
  Company Number: GB-SANOFI-AVENTIS-200113128GB

PATIENT
  Age: 32 Year
  Sex: Female

DRUGS (7)
  1. RIFAMPICIN [Suspect]
     Dosage: DOSE UNIT: 600 MG
     Route: 048
  2. DOXYCYCLINE [Concomitant]
     Dates: start: 19981215, end: 19981230
  3. CLARITHROMYCIN [Concomitant]
  4. ACETAMINOPHEN [Suspect]
     Indication: LYMPHADENOPATHY
     Dosage: DOSE AS USED: 2-4 G FOR SEVERAL WEEKS
     Route: 048
     Dates: start: 19981201, end: 19990115
  5. RIFAMPICIN [Suspect]
     Dosage: DOSE UNIT: 600 MG
     Route: 048
  6. ACETAMINOPHEN [Suspect]
     Dosage: DOSE AS USED: 2-4 G FOR SEVERAL WEEKS
     Route: 048
     Dates: start: 19981201, end: 19990115
  7. ACETAMINOPHEN [Suspect]
     Dosage: DOSE AS USED: 2-4 G FOR SEVERAL WEEKS
     Route: 048
     Dates: start: 19981201, end: 19990115

REACTIONS (12)
  - HEPATIC FAILURE [None]
  - BLOOD ALKALINE PHOSPHATASE INCREASED [None]
  - DRUG INTERACTION [None]
  - AGITATION [None]
  - ADVERSE REACTION [None]
  - ALANINE AMINOTRANSFERASE INCREASED [None]
  - PSEUDOLYMPHOMA [None]
  - BLOOD BILIRUBIN INCREASED [None]
  - PROTHROMBIN TIME PROLONGED [None]
  - ENCEPHALOPATHY [None]
  - CONFUSIONAL STATE [None]
  - INTERNATIONAL NORMALISED RATIO INCREASED [None]
